FAERS Safety Report 8772530 (Version 1)
Quarter: 2012Q4

REPORT INFORMATION
  Report Type: 
  Country: US (occurrence: US)
  Receive Date: 20120905
  Receipt Date: 20120905
  Transmission Date: 20130627
  Serious: Yes (Hospitalization, Other)
  Sender: FDA-Public Use
  Company Number: US-JNJFOC-20120813845

PATIENT
  Age: 55 None
  Sex: Male
  Weight: 76.2 kg

DRUGS (8)
  1. REMICADE [Suspect]
     Indication: PSORIASIS
     Route: 042
     Dates: start: 20120817
  2. REMICADE [Suspect]
     Indication: PSORIASIS
     Route: 042
     Dates: start: 200905, end: 201012
  3. LIPITOR [Concomitant]
     Indication: BLOOD CHOLESTEROL
     Route: 048
  4. ASA [Concomitant]
     Indication: MYOCARDIAL INFARCTION
     Route: 048
  5. ATENOLOL [Concomitant]
     Indication: BLOOD PRESSURE
     Route: 048
  6. LISINOPRIL [Concomitant]
     Indication: BLOOD PRESSURE
     Route: 048
  7. PLAVIX [Concomitant]
     Indication: MYOCARDIAL INFARCTION
     Route: 048
  8. ZETIA [Concomitant]
     Indication: BLOOD CHOLESTEROL
     Route: 048

REACTIONS (7)
  - Arthralgia [Not Recovered/Not Resolved]
  - Nervous system disorder [Recovered/Resolved]
  - Myalgia [Not Recovered/Not Resolved]
  - Pain in jaw [Recovered/Resolved]
  - Throat irritation [Recovered/Resolved]
  - Sensory disturbance [Recovered/Resolved]
  - Asthenia [Recovered/Resolved]
